FAERS Safety Report 24344618 (Version 1)
Quarter: 2024Q3

REPORT INFORMATION
  Report Type: Report from Study
  Country: DE (occurrence: DE)
  Receive Date: 20240920
  Receipt Date: 20240920
  Transmission Date: 20241016
  Serious: Yes (Death, Hospitalization)
  Sender: JOHNSON AND JOHNSON
  Company Number: DE-BAYER-2024A134487

PATIENT
  Age: 77 Year
  Sex: Male

DRUGS (1)
  1. VENTAVIS [Suspect]
     Active Substance: ILOPROST
     Indication: Pulmonary arterial hypertension
     Dosage: V10?THERAPY END DATE: /SEP/2024
     Route: 055
     Dates: start: 20240828

REACTIONS (1)
  - Death [Fatal]

NARRATIVE: CASE EVENT DATE: 20240918
